FAERS Safety Report 16071777 (Version 3)
Quarter: 2019Q2

REPORT INFORMATION
  Report Type: Spontaneous
  Country: US (occurrence: US)
  Receive Date: 20190314
  Receipt Date: 20190403
  Transmission Date: 20190711
  Serious: No
  Sender: FDA-Public Use
  Company Number: US-PFIZER INC-2019103240

PATIENT
  Age: 66 Year
  Sex: Female

DRUGS (1)
  1. REVATIO [Suspect]
     Active Substance: SILDENAFIL CITRATE
     Indication: POSTPARTUM HAEMORRHAGE
     Dosage: 20 MG, 3X/DAY
     Route: 048

REACTIONS (5)
  - Feeling abnormal [Unknown]
  - Sinusitis [Unknown]
  - Product prescribing error [Unknown]
  - Malaise [Unknown]
  - Product use in unapproved indication [Unknown]
